FAERS Safety Report 19099997 (Version 2)
Quarter: 2021Q2

REPORT INFORMATION
  Report Type: Report from Study
  Country: None (occurrence: IL)
  Receive Date: 20210407
  Receipt Date: 20210426
  Transmission Date: 20210717
  Serious: Yes (Hospitalization)
  Sender: FDA-Public Use
  Company Number: IL-ABBVIE-21K-082-3845971-00

PATIENT
  Sex: Male

DRUGS (7)
  1. DUODOPA [Suspect]
     Active Substance: CARBIDOPA\LEVODOPA
     Indication: PARKINSON^S DISEASE
     Route: 050
     Dates: start: 20170115
  2. DUODOPA [Suspect]
     Active Substance: CARBIDOPA\LEVODOPA
     Dosage: MD 5.0ML, CONTINUOUS DOSE 5.8ML/HOUR, EXTRA DOSE 4.0ML, NIGHT CONTINUOUS DOSAGE 3.5ML/HR
     Route: 050
     Dates: start: 202104
  3. DUODOPA [Suspect]
     Active Substance: CARBIDOPA\LEVODOPA
     Dosage: MD 5.0ML, CONTINUOUS DOSE 5.5ML/HOUR, EXTRA DOSE 4.0ML, NIGHT CONTINUOUS DOSAGE 3.0ML/HR
     Route: 050
     Dates: start: 20210401, end: 202104
  4. DUODOPA [Suspect]
     Active Substance: CARBIDOPA\LEVODOPA
     Dosage: MD 5ML, CONTINUOUS DOSE 4.7ML/HOUR, EXTRA DOSE 4ML, NIGHT CONTINUOUS DOSAGE 2.3ML/HR
     Route: 050
  5. DUODOPA [Suspect]
     Active Substance: CARBIDOPA\LEVODOPA
     Dosage: MD 5ML, CONTINUOUS DOSE 5.3ML/HOUR, EXTRA DOSE 4.0ML, NIGHT CONTINUOUS DOSAGE 3.2ML/HR
     Route: 050
  6. DUODOPA [Suspect]
     Active Substance: CARBIDOPA\LEVODOPA
     Dosage: MD 5ML, CONTINUOUS DOSE 4.7ML/HOUR, EXTRA DOSE 4ML, NIGHT CONTINUOUS DOSAGE 3.0ML/HR
     Route: 050
  7. DUODOPA [Suspect]
     Active Substance: CARBIDOPA\LEVODOPA
     Dosage: MD 5ML, CONTINUOUS DOSE 5.0ML/HOUR, EXTRA DOSE 4.0ML, NIGHT CONTINUOUS DOSAGE 3.0ML/HR
     Route: 050

REACTIONS (4)
  - On and off phenomenon [Unknown]
  - Neutropenia [Unknown]
  - Pneumonia [Unknown]
  - Hallucination [Unknown]
